FAERS Safety Report 9153287 (Version 1)
Quarter: 2013Q1

REPORT INFORMATION
  Report Type: Spontaneous
  Country: US (occurrence: US)
  Receive Date: 20130311
  Receipt Date: 20130311
  Transmission Date: 20140127
  Serious: Yes (Hospitalization)
  Sender: FDA-Public Use
  Company Number: US-BIOGENIDEC-2013BI021708

PATIENT
  Age: 55 Year
  Sex: Female

DRUGS (2)
  1. AVONEX [Suspect]
     Indication: MULTIPLE SCLEROSIS
     Route: 030
     Dates: start: 20120113, end: 20120701
  2. AVONEX [Suspect]
     Indication: MULTIPLE SCLEROSIS
     Route: 030
     Dates: start: 20120701

REACTIONS (8)
  - Pancreatic disorder [Recovered/Resolved]
  - Blindness unilateral [Recovered/Resolved]
  - Migraine [Recovered/Resolved]
  - Photophobia [Recovered/Resolved]
  - Memory impairment [Not Recovered/Not Resolved]
  - Ageusia [Not Recovered/Not Resolved]
  - Reading disorder [Unknown]
  - Fatigue [Not Recovered/Not Resolved]
